FAERS Safety Report 24608839 (Version 1)
Quarter: 2024Q4

REPORT INFORMATION
  Report Type: Spontaneous
  Country: US (occurrence: US)
  Receive Date: 20241112
  Receipt Date: 20241112
  Transmission Date: 20250115
  Serious: No
  Sender: Alora Pharma
  Company Number: US-ACELLA PHARMACEUTICALS, LLC-2024ALO00014

PATIENT
  Sex: Female
  Weight: 75.296 kg

DRUGS (1)
  1. CICLOPIROX [Suspect]
     Active Substance: CICLOPIROX
     Indication: Onychomycosis
     Dosage: APPLY TO AFFECTED TOENAILS ONCE DAILY IN THE EVENIN
     Route: 061
     Dates: start: 20231227

REACTIONS (2)
  - Product residue present [Not Recovered/Not Resolved]
  - Product quality issue [Not Recovered/Not Resolved]
